FAERS Safety Report 8607993 (Version 3)
Quarter: 2014Q2

REPORT INFORMATION
  Report Type: Spontaneous
  Country: US (occurrence: US)
  Receive Date: 20120611
  Receipt Date: 20140422
  Transmission Date: 20141212
  Serious: Yes (Hospitalization, Disabling)
  Sender: FDA-Public Use
  Company Number: US-ASTRAZENECA-2012SE35704

PATIENT
  Age: 53 Year
  Sex: Male
  Weight: 79.4 kg

DRUGS (22)
  1. NEXIUM [Suspect]
     Indication: GASTROOESOPHAGEAL REFLUX DISEASE
     Route: 048
     Dates: start: 2000, end: 2010
  2. NEXIUM [Suspect]
     Indication: ABDOMINAL PAIN
     Route: 048
     Dates: start: 2000, end: 2010
  3. NEXIUM [Suspect]
     Indication: ABDOMINAL DISCOMFORT
     Route: 048
     Dates: start: 2000, end: 2010
  4. NEXIUM [Suspect]
     Indication: GASTROOESOPHAGEAL REFLUX DISEASE
     Route: 048
     Dates: start: 20051112
  5. NEXIUM [Suspect]
     Indication: ABDOMINAL PAIN
     Route: 048
     Dates: start: 20051112
  6. NEXIUM [Suspect]
     Indication: ABDOMINAL DISCOMFORT
     Route: 048
     Dates: start: 20051112
  7. PRILOSEC [Suspect]
     Route: 048
  8. PRILOSEC [Suspect]
     Route: 048
     Dates: start: 20020906
  9. TRAMADOL [Concomitant]
     Indication: GASTROENTERITIS VIRAL
  10. ACTOS [Concomitant]
  11. ACTOS [Concomitant]
     Dosage: TAKE AS DIRECTED
     Route: 048
     Dates: start: 20021025
  12. MECLIZINE [Concomitant]
     Route: 048
     Dates: start: 20020905
  13. ALLEGRA [Concomitant]
     Route: 048
     Dates: start: 20030505
  14. ATARAX [Concomitant]
     Route: 048
     Dates: start: 20030505
  15. RANITIDINE [Concomitant]
     Route: 048
     Dates: start: 20031206
  16. NEURONTIN [Concomitant]
     Route: 048
     Dates: start: 20040518
  17. VIOXX [Concomitant]
     Route: 048
     Dates: start: 20040518
  18. PROZAC [Concomitant]
     Route: 048
     Dates: start: 20041009
  19. TRAZODONE [Concomitant]
     Route: 048
     Dates: start: 20041203
  20. TOPAMAX [Concomitant]
     Route: 048
     Dates: start: 20041215
  21. MEDROL [Concomitant]
     Route: 048
     Dates: start: 20050511
  22. PREDNISONE [Concomitant]
     Dosage: TAKE 3 TABLETS DAILY FOR 3 DAYS THEN 2 TABLETS DAILY FOR 3 DAYS
     Route: 048
     Dates: start: 20050531

REACTIONS (8)
  - Spinal compression fracture [Unknown]
  - Joint injury [Unknown]
  - Back disorder [Unknown]
  - Osteoporosis [Unknown]
  - Multiple fractures [Unknown]
  - Arthritis [Unknown]
  - Diabetes mellitus [Unknown]
  - Osteopenia [Unknown]
